FAERS Safety Report 5373666-X (Version None)
Quarter: 2007Q2

REPORT INFORMATION
  Report Type: 
  Country: None (occurrence: None)
  Receive Date: 20070615
  Receipt Date: 20060815
  Transmission Date: 20071010
  Serious: Yes (Other)
  Sender: FDA-Public Use
  Company Number: 200516939US

PATIENT
  Age: 80 Year
  Sex: Male

DRUGS (16)
  1. LANTUS [Suspect]
     Indication: DIABETES MELLITUS NON-INSULIN-DEPENDENT
     Dosage: 30 U AM+PM INJ
  2. LANTUS [Suspect]
     Indication: DIABETES MELLITUS NON-INSULIN-DEPENDENT
     Dosage: 30 U AM+PM INJ
  3. NOVOLOG [Concomitant]
  4. FUROSEMIDE (LASIX 0032601/) [Concomitant]
  5. KETOCONAZOLE [Concomitant]
  6. ADENOSINE (TRICOR /00090101/) [Concomitant]
  7. ISOSORBIDE DINITRATE [Concomitant]
  8. HYDROCORTISONE [Concomitant]
  9. CITALOPRAM HYDROBROMIDE (CELEXA /00582602/) [Concomitant]
  10. NIZORAL [Concomitant]
  11. CLOPIDOGREL (PLAVIX  /01220701/) [Concomitant]
  12. LANOXIN [Concomitant]
  13. XANAX [Concomitant]
  14. WARFARIN SODIUM [Concomitant]
  15. LEUPRORELIN ACETATE (LUPRON) [Concomitant]
  16. POTASSIUM CHLORIDE (KLOR-CON) [Concomitant]

REACTIONS (1)
  - HYPERGLYCAEMIA [None]
